FAERS Safety Report 8947906 (Version 2)
Quarter: 2013Q1

REPORT INFORMATION
  Report Type: Spontaneous
  Country: US (occurrence: None)
  Receive Date: 20121127
  Receipt Date: 20121210
  Transmission Date: 20140127
  Serious: Yes (Hospitalization, Other)
  Sender: FDA-Public Use
  Company Number: ACO_33076_2012

PATIENT
  Age: 56 Year
  Sex: Male

DRUGS (10)
  1. AMPYRA (DALFAMPRIDINE) TABLET, 10MG [Suspect]
     Indication: GAIT DISTURBANCE
     Dates: start: 2010, end: 20121031
  2. BACLOFEN (BACLOFEN) [Concomitant]
  3. BETASERON (ALBUMIN HUMAN, GLUCOSE, INTERFERON BETA) [Concomitant]
  4. FISH OIL (FISH OIL) [Concomitant]
  5. DITROPAN (OXYBUTYNIN HYDROCHLORIDE) [Concomitant]
  6. CRESTOR (ROSUVASTATIN CALCIUM) [Concomitant]
  7. ZOLOFT (SERTRALINE HYDROCHLORIDE) [Concomitant]
  8. VITAMIN D (ERGOCALCIFEROL) [Concomitant]
  9. ADDERALL (AMFETAMINE ASPARTATE, AMFETAMINE SULFATE, DEXAMFETAMINE SACCHARATE, DEXAMFETAMINE SULFATE) [Concomitant]
  10. LOPRESSOR (METOPROLOL TARTRATE) [Concomitant]

REACTIONS (2)
  - Convulsion [None]
  - Myocardial infarction [None]
